FAERS Safety Report 18202121 (Version 3)
Quarter: 2020Q4

REPORT INFORMATION
  Report Type: Spontaneous
  Country: US (occurrence: US)
  Receive Date: 20200827
  Receipt Date: 20201230
  Transmission Date: 20210113
  Serious: No
  Sender: FDA-Public Use
  Company Number: US-PFIZER INC-2020332184

PATIENT
  Age: 61 Year
  Sex: Female

DRUGS (2)
  1. IBRANCE [Suspect]
     Active Substance: PALBOCICLIB
     Indication: BREAST CANCER FEMALE
     Dosage: 125 MG, CYCLIC (QD X 21 DAYS Q 28 DAYS), BY MOUTH
     Route: 048
     Dates: start: 20191217
  2. LETROZOLE. [Suspect]
     Active Substance: LETROZOLE
     Dosage: UNK

REACTIONS (11)
  - Inappropriate schedule of product administration [Unknown]
  - Intentional product use issue [Unknown]
  - Sciatica [Unknown]
  - White blood cell count decreased [Not Recovered/Not Resolved]
  - Ageusia [Unknown]
  - Weight increased [Unknown]
  - Hypersensitivity [Unknown]
  - Fatigue [Unknown]
  - Alopecia [Not Recovered/Not Resolved]
  - Anosmia [Unknown]
  - Perfume sensitivity [Unknown]
